FAERS Safety Report 9088628 (Version 1)
Quarter: 2013Q1

REPORT INFORMATION
  Report Type: Spontaneous
  Country: US (occurrence: US)
  Receive Date: 20130201
  Receipt Date: 20130201
  Transmission Date: 20140127
  Serious: Yes (Other)
  Sender: FDA-Public Use
  Company Number: US-COVIDIEN/TYCO HEALTHCARE/MALLINCKRODT-T201300103

PATIENT
  Age: 58 Year
  Sex: Female

DRUGS (4)
  1. METHADONE [Suspect]
     Indication: PAIN
     Dosage: 10 MG, 3 TABLETS Q 8 HOURS
     Route: 048
     Dates: start: 20130114
  2. OXYCODONE [Concomitant]
     Dosage: 30 MG, QD
  3. ATIVAN [Concomitant]
     Dosage: 12 MG, QD
  4. VISTARIL /00058402/ [Concomitant]
     Dosage: 50 MG, UNK

REACTIONS (3)
  - Drug diversion [Unknown]
  - Confusional state [Unknown]
  - Glossodynia [Not Recovered/Not Resolved]
